FAERS Safety Report 9562033 (Version 3)
Quarter: 2015Q2

REPORT INFORMATION
  Report Type: Report from Study
  Country: US (occurrence: US)
  Receive Date: 20130927
  Receipt Date: 20150402
  Transmission Date: 20150821
  Serious: Yes (Death, Other)
  Sender: FDA-Public Use
  Company Number: US-ASTELLAS-2013US010090

PATIENT
  Age: 55 Year
  Sex: Female

DRUGS (2)
  1. ERLOTINIB [Suspect]
     Active Substance: ERLOTINIB
     Indication: LUNG NEOPLASM MALIGNANT
     Dosage: 100 MG,ONCE DAILY
     Route: 048
     Dates: start: 20111012
  2. ERLOTINIB [Suspect]
     Active Substance: ERLOTINIB
     Route: 048
     Dates: end: 20130901

REACTIONS (2)
  - Blood disorder [Fatal]
  - Neoplasm malignant [Fatal]

NARRATIVE: CASE EVENT DATE: 20110921
